FAERS Safety Report 18956160 (Version 2)
Quarter: 2023Q1

REPORT INFORMATION
  Report Type: Report from Study
  Country: US (occurrence: US)
  Receive Date: 20210301
  Receipt Date: 20230124
  Transmission Date: 20230417
  Serious: Yes (Death, Hospitalization)
  Sender: FDA-Public Use
  Company Number: US-VIFOR (INTERNATIONAL) INC.-VIT-2020-00911

PATIENT
  Age: 77 Year
  Sex: Male

DRUGS (19)
  1. VELTASSA [Suspect]
     Active Substance: PATIROMER
     Indication: Hyperkalaemia
     Route: 048
     Dates: start: 20190130, end: 201909
  2. VELTASSA [Suspect]
     Active Substance: PATIROMER
     Route: 048
     Dates: start: 201912
  3. VELTASSA [Suspect]
     Active Substance: PATIROMER
     Route: 048
     Dates: start: 201912
  4. CARVEDILOL [Concomitant]
     Active Substance: CARVEDILOL
     Dosage: 25 MG IN MORNING AND 75 MG IN EVENING
  5. VITAMINS [Concomitant]
     Active Substance: VITAMINS
  6. ASPIRIN [Concomitant]
     Active Substance: ASPIRIN
  7. LASIX [Concomitant]
     Active Substance: FUROSEMIDE
     Dosage: 80 MG IN MORNING AND 80 MG IN EVENING
  8. HYDRALAZINE [Concomitant]
     Active Substance: HYDRALAZINE HYDROCHLORIDE
  9. ISOSORBIDE MONONITRATE [Concomitant]
     Active Substance: ISOSORBIDE MONONITRATE
  10. PENICILLIN [Concomitant]
     Active Substance: PENICILLIN
  11. VITAMIN AREDS [Concomitant]
     Indication: Eye disorder
     Dosage: 2 FOR EYE.
  12. PROBIOTICS NOS [Concomitant]
     Active Substance: PROBIOTICS NOS
  13. BENADRYL [Concomitant]
     Active Substance: DIPHENHYDRAMINE HYDROCHLORIDE
  14. ALLEGRA [Concomitant]
     Active Substance: FEXOFENADINE HYDROCHLORIDE
  15. OMEPRAZOLE [Concomitant]
     Active Substance: OMEPRAZOLE
  16. SIMVASTATIN [Concomitant]
     Active Substance: SIMVASTATIN
  17. TESTOSTERONE [Concomitant]
     Active Substance: TESTOSTERONE
  18. EYLEA [Concomitant]
     Active Substance: AFLIBERCEPT
     Indication: Eye disorder
  19. OTC MUCINEX [Concomitant]

REACTIONS (5)
  - Death [Fatal]
  - Atrioventricular block [Unknown]
  - Cough [Not Recovered/Not Resolved]
  - Product solubility abnormal [Unknown]
  - Inability to afford medication [Unknown]

NARRATIVE: CASE EVENT DATE: 20190101
